FAERS Safety Report 4711846-4 (Version None)
Quarter: 2005Q2

REPORT INFORMATION
  Report Type: 
  Country: None (occurrence: None)
  Receive Date: 20050629
  Receipt Date: 20050401
  Transmission Date: 20051028
  Serious: No
  Sender: FDA-Public Use
  Company Number: 05P-163-029229-00

PATIENT
  Age: 46 Year
  Sex: Female
  Weight: 54.4316 kg

DRUGS (12)
  1. HUMIRA [Suspect]
     Indication: SJOGREN'S SYNDROME
     Dosage: SEE IMAGE
     Route: 058
     Dates: start: 20040611, end: 20041012
  2. HUMIRA [Suspect]
     Indication: SJOGREN'S SYNDROME
     Dosage: SEE IMAGE
     Route: 058
     Dates: start: 20041112, end: 20050201
  3. HUMIRA [Suspect]
     Indication: SJOGREN'S SYNDROME
     Dosage: SEE IMAGE
     Route: 058
     Dates: start: 20040301
  4. STEROIDS [Concomitant]
  5. RESTASIS [Concomitant]
  6. SHOHL'S SOLUTION [Concomitant]
  7. ALLFIN [Concomitant]
  8. LOTEPREDNOL ETABONATE [Concomitant]
  9. MENEST [Concomitant]
  10. ESTROTEST [Concomitant]
  11. VAGIFILM [Concomitant]
  12. ALENDRONATE SODIUM [Concomitant]

REACTIONS (6)
  - GASTROENTERITIS [None]
  - INJECTION [None]
  - INJECTION SITE ERYTHEMA [None]
  - MYALGIA [None]
  - PRURITUS [None]
  - URTICARIA [None]
